FAERS Safety Report 7499799-X (Version None)
Quarter: 2011Q2

REPORT INFORMATION
  Report Type: 
  Country: None (occurrence: None)
  Receive Date: 20110524
  Receipt Date: 20110517
  Transmission Date: 20111010
  Serious: No
  Sender: FDA-Public Use
  Company Number: US-ROXANE LABORATORIES, INC.-2011-RO-00694RO

PATIENT
  Age: 35 Year
  Sex: Male

DRUGS (1)
  1. FLUTICASONE PROPIONATE [Suspect]
     Indication: RHINITIS SEASONAL
     Route: 055

REACTIONS (4)
  - NASAL DISCOMFORT [None]
  - VOMITING [None]
  - THROAT IRRITATION [None]
  - NAUSEA [None]
